FAERS Safety Report 12360374 (Version 4)
Quarter: 2016Q4

REPORT INFORMATION
  Report Type: Report from Study
  Country: HU (occurrence: HU)
  Receive Date: 20160512
  Receipt Date: 20161202
  Transmission Date: 20170207
  Serious: Yes (Hospitalization)
  Sender: FDA-Public Use
  Company Number: HU-JNJFOC-20160505795

PATIENT
  Age: 65 Year
  Sex: Male
  Weight: 73 kg

DRUGS (4)
  1. ZYTIGA [Suspect]
     Active Substance: ABIRATERONE ACETATE
     Indication: PROSTATE CANCER
     Route: 048
     Dates: start: 20140731
  2. PREDNISONE. [Suspect]
     Active Substance: PREDNISONE
     Indication: PROSTATE CANCER
     Route: 048
     Dates: start: 20140731
  3. VIDONORM [Concomitant]
     Indication: HYPERTENSION
     Route: 065
     Dates: start: 20150312, end: 20150919
  4. VIDONORM [Concomitant]
     Indication: HYPERTENSION
     Route: 065
     Dates: start: 201307, end: 20150312

REACTIONS (3)
  - Deep vein thrombosis [Recovered/Resolved with Sequelae]
  - Circulatory collapse [Recovered/Resolved]
  - Haemorrhage intracranial [Recovered/Resolved]

NARRATIVE: CASE EVENT DATE: 20160302
